FAERS Safety Report 19922882 (Version 1)
Quarter: 2021Q4

REPORT INFORMATION
  Report Type: Spontaneous
  Country: US (occurrence: US)
  Receive Date: 20211005
  Receipt Date: 20211005
  Transmission Date: 20220303
  Serious: Yes (Hospitalization)
  Sender: FDA-Public Use
  Company Number: None

PATIENT
  Age: 29 Year
  Sex: Female
  Weight: 62.55 kg

DRUGS (4)
  1. CYTOTEC [Suspect]
     Active Substance: MISOPROSTOL
     Indication: Hysteroscopy
     Dosage: ?          OTHER STRENGTH:MCG;QUANTITY:2 TABLET(S);OTHER FREQUENCY:AT MIDNIGHT BEFORE;
     Route: 067
     Dates: start: 20210922, end: 20210922
  2. VITAMIN D [Concomitant]
     Active Substance: VITAMIN D NOS
  3. VITAMIN C [Concomitant]
     Active Substance: ASCORBIC ACID
  4. FLO VITAMINS [Concomitant]

REACTIONS (10)
  - Abdominal pain [None]
  - Crying [None]
  - Pain [None]
  - Hyperventilation [None]
  - Paraesthesia [None]
  - Muscle spasms [None]
  - Emotional distress [None]
  - Heart rate increased [None]
  - Respiratory rate increased [None]
  - Vaginal haemorrhage [None]

NARRATIVE: CASE EVENT DATE: 20210922
